FAERS Safety Report 8600744 (Version 3)
Quarter: 2013Q2

REPORT INFORMATION
  Report Type: Spontaneous
  Country: CN (occurrence: CN)
  Receive Date: 20120606
  Receipt Date: 20130605
  Transmission Date: 20140414
  Serious: Yes (Other)
  Sender: FDA-Public Use
  Company Number: CN-ASTRAZENECA-2012SE34149

PATIENT
  Age: 600 Month
  Sex: Female
  Weight: 55.8 kg

DRUGS (1)
  1. FASLODEX [Suspect]
     Indication: BREAST CANCER
     Route: 030
     Dates: start: 20120518, end: 20120518

REACTIONS (5)
  - Overdose [Recovered/Resolved]
  - Blister [Recovering/Resolving]
  - Skin infection [Recovering/Resolving]
  - Rash [Recovering/Resolving]
  - Drug hypersensitivity [Unknown]
